FAERS Safety Report 8596700-2 (Version None)
Quarter: 2012Q3

REPORT INFORMATION
  Report Type: 
  Country: None (occurrence: None)
  Receive Date: 20120815
  Receipt Date: 20120807
  Transmission Date: 20120928
  Serious: Yes (Hospitalization)
  Sender: FDA-Public Use
  Company Number: VN-BAXTER-2012BAX014138

PATIENT
  Age: 65 Year
  Sex: Female

DRUGS (6)
  1. IMODIUM [Suspect]
     Route: 065
  2. DIANEAL [Suspect]
     Dosage: 3 BAGS/DAY
     Route: 033
     Dates: start: 20110301
  3. ALUMINUM HYDROXIDE AND MAGNESIUM TRISILICATE [Suspect]
     Route: 065
  4. CEFTAZIDIME [Suspect]
     Indication: PERITONITIS
     Route: 033
  5. DIANEAL [Suspect]
     Dosage: 1 BAG/DAY
     Route: 033
  6. CEFAZOLIN [Suspect]
     Indication: PERITONITIS
     Route: 033

REACTIONS (3)
  - PERITONITIS [None]
  - PYREXIA [None]
  - DIARRHOEA [None]
